FAERS Safety Report 11708610 (Version 1)
Quarter: 2015Q4

REPORT INFORMATION
  Report Type: Spontaneous
  Country: US (occurrence: US)
  Receive Date: 20151104
  Receipt Date: 20151104
  Transmission Date: 20160304
  Serious: No
  Sender: FDA-Public Use
  Company Number: US-ELI_LILLY_AND_COMPANY-US201101003299

PATIENT
  Age: 69 Year
  Sex: Female

DRUGS (2)
  1. FORTEO [Suspect]
     Active Substance: TERIPARATIDE
     Dosage: 20 UG, QD
     Route: 065
  2. FORTEO [Suspect]
     Active Substance: TERIPARATIDE
     Indication: OSTEOPOROSIS
     Dosage: 20 UG, QD
     Route: 065
     Dates: start: 20101202

REACTIONS (9)
  - Fatigue [Unknown]
  - Muscle spasms [Unknown]
  - Blood calcium increased [Recovered/Resolved]
  - Abdominal discomfort [Not Recovered/Not Resolved]
  - Diarrhoea [Recovered/Resolved]
  - Fall [Recovered/Resolved]
  - Constipation [Not Recovered/Not Resolved]
  - Pain in extremity [Unknown]
  - Ligament sprain [Recovered/Resolved]

NARRATIVE: CASE EVENT DATE: 201101
